FAERS Safety Report 8975528 (Version 6)
Quarter: 2013Q1

REPORT INFORMATION
  Report Type: Spontaneous
  Country: US (occurrence: US)
  Receive Date: 20121219
  Receipt Date: 20130131
  Transmission Date: 20140127
  Serious: No
  Sender: FDA-Public Use
  Company Number: US-VERTEX PHARMACEUTICALS INC.-2012-026259

PATIENT
  Age: 48 None
  Sex: Male
  Weight: 129 kg

DRUGS (13)
  1. BABY ASPIRIN [Concomitant]
     Indication: ANTICOAGULANT THERAPY
  2. VITAMIN D [Concomitant]
     Dosage: 20000 UT, UNK
     Route: 048
  3. INCIVEK [Suspect]
     Indication: HEPATITIS C
     Dosage: 750 MG, TID
     Route: 048
     Dates: start: 20121214
  4. RIBAVIRIN [Suspect]
     Indication: HEPATITIS C
     Dosage: 600MG AM, 800MG PM
     Dates: start: 20121215
  5. RIBAVIRIN [Suspect]
     Dosage: 2 DF IN AM, 3 DF IN PM
     Dates: start: 20130105, end: 20130112
  6. RIBAVIRIN [Suspect]
     Dosage: 2 DF IN AM, 1 DF IN PM
     Dates: start: 20130112, end: 20130119
  7. RIBAVIRIN [Suspect]
     Dosage: 1 DF, UNK
     Dates: start: 20130125
  8. PEGASYS [Suspect]
     Indication: HEPATITIS C
     Dosage: 150 ?G, QW
     Route: 058
     Dates: start: 20121214
  9. TRAMADOL [Concomitant]
     Indication: BACK PAIN
     Dosage: 50 MG, UNK
     Route: 048
  10. TRAMADOL [Concomitant]
     Indication: ARTHRALGIA
  11. ATENOLOL [Concomitant]
     Indication: BLOOD PRESSURE
  12. GABAPENTIN [Concomitant]
     Indication: PAIN MANAGEMENT
  13. OMEPRAZOLE [Concomitant]
     Indication: GASTROOESOPHAGEAL REFLUX DISEASE

REACTIONS (23)
  - Inappropriate schedule of drug administration [Unknown]
  - Headache [Not Recovered/Not Resolved]
  - Blood count abnormal [Not Recovered/Not Resolved]
  - Irritability [Not Recovered/Not Resolved]
  - Laziness [Not Recovered/Not Resolved]
  - Thirst [Not Recovered/Not Resolved]
  - Insomnia [Not Recovered/Not Resolved]
  - Pain in extremity [Not Recovered/Not Resolved]
  - Hyperhidrosis [Not Recovered/Not Resolved]
  - Dry mouth [Not Recovered/Not Resolved]
  - Dry skin [Not Recovered/Not Resolved]
  - Chills [Not Recovered/Not Resolved]
  - Dark circles under eyes [Not Recovered/Not Resolved]
  - Hypersomnia [Not Recovered/Not Resolved]
  - Pollakiuria [Not Recovered/Not Resolved]
  - Nasopharyngitis [Not Recovered/Not Resolved]
  - Lip dry [Not Recovered/Not Resolved]
  - Chapped lips [Not Recovered/Not Resolved]
  - Fatigue [Not Recovered/Not Resolved]
  - Asthenia [Not Recovered/Not Resolved]
  - Rash pruritic [Not Recovered/Not Resolved]
  - Skin exfoliation [Not Recovered/Not Resolved]
  - Nausea [Not Recovered/Not Resolved]
